FAERS Safety Report 10389920 (Version 1)
Quarter: 2014Q3

REPORT INFORMATION
  Report Type: Report from Study
  Country: US (occurrence: US)
  Receive Date: 20140818
  Receipt Date: 20140818
  Transmission Date: 20150326
  Serious: Yes (Hospitalization)
  Sender: FDA-Public Use
  Company Number: US-SA-2014SA107618

PATIENT
  Age: 55 Year
  Sex: Female

DRUGS (4)
  1. HUMULIN N [Concomitant]
     Active Substance: INSULIN HUMAN
  2. SOLOSTAR [Concomitant]
     Active Substance: DEVICE
     Indication: TYPE 1 DIABETES MELLITUS
     Dates: start: 201404
  3. LANTUS SOLOSTAR [Suspect]
     Active Substance: INSULIN GLARGINE
     Indication: TYPE 1 DIABETES MELLITUS
     Dosage: LOT NO.: 3F4(D OR 0)8A DOSE:10 UNIT(S)
     Route: 065
     Dates: start: 201404
  4. HUMULIN R [Concomitant]
     Active Substance: INSULIN HUMAN

REACTIONS (3)
  - Dehydration [Unknown]
  - Ketoacidosis [Unknown]
  - Cardiac disorder [Unknown]
